FAERS Safety Report 9322561 (Version 1)
Quarter: 2013Q2

REPORT INFORMATION
  Report Type: Spontaneous
  Country: GB (occurrence: GB)
  Receive Date: 20130531
  Receipt Date: 20130531
  Transmission Date: 20140414
  Serious: Yes (Death)
  Sender: FDA-Public Use
  Company Number: GB-ASTRAZENECA-2013SE37676

PATIENT
  Age: 63 Year
  Sex: Male
  Weight: 80 kg

DRUGS (10)
  1. TICAGRELOR [Suspect]
     Indication: MYOCARDIAL INFARCTION
     Route: 048
     Dates: start: 20130503, end: 20130505
  2. ASPIRIN [Suspect]
     Indication: ELECTROCARDIOGRAM ST SEGMENT ELEVATION
     Route: 048
     Dates: start: 20130504, end: 20130505
  3. ASPIRIN [Suspect]
     Indication: MYOCARDIAL INFARCTION
     Route: 048
     Dates: start: 20130504, end: 20130505
  4. HEPARIN [Suspect]
     Indication: ELECTROCARDIOGRAM ST SEGMENT ELEVATION
     Route: 042
     Dates: start: 20130503, end: 20130505
  5. HEPARIN [Suspect]
     Indication: MYOCARDIAL INFARCTION
     Route: 042
     Dates: start: 20130503, end: 20130505
  6. DIGOXIN [Concomitant]
  7. FRUSEMIDE [Concomitant]
  8. LISINOPRIL [Concomitant]
  9. SIMVASTATIN [Concomitant]
  10. WARFARIN [Concomitant]

REACTIONS (5)
  - Renal failure acute [Fatal]
  - Brain injury [Fatal]
  - Cardiac arrest [Fatal]
  - Subdural haemorrhage [Fatal]
  - Unresponsive to stimuli [Fatal]
